FAERS Safety Report 8530620-4 (Version None)
Quarter: 2012Q3

REPORT INFORMATION
  Report Type: 
  Country: None (occurrence: None)
  Receive Date: 20120723
  Receipt Date: 20120629
  Transmission Date: 20120928
  Serious: Yes (Hospitalization, Other)
  Sender: FDA-Public Use
  Company Number: CN-SANOFI-AVENTIS-2010SA078500

PATIENT
  Age: 79 Year
  Sex: Male

DRUGS (6)
  1. LANTUS [Suspect]
     Route: 058
     Dates: start: 20050315
  2. OMEGA-3 POLYUNSATURATED FATTY ACID [Suspect]
     Dates: start: 20050315
  3. FELODIPINE [Concomitant]
     Indication: HYPERTENSION
     Dates: start: 20040101
  4. VALSARTAN [Concomitant]
     Indication: HYPERTENSION
     Dates: start: 20040101
  5. ACARBOSE [Concomitant]
     Dates: start: 20031201
  6. OPTIPEN [Suspect]

REACTIONS (2)
  - HAEMATURIA [None]
  - PROSTATE CANCER [None]
